FAERS Safety Report 7544165-1 (Version None)
Quarter: 2011Q2

REPORT INFORMATION
  Report Type: 
  Country: None (occurrence: None)
  Receive Date: 20110613
  Receipt Date: 20070222
  Transmission Date: 20111010
  Serious: Yes (Death, Hospitalization, Other)
  Sender: FDA-Public Use
  Company Number: PHMT2006CA02216

PATIENT
  Sex: Female

DRUGS (5)
  1. ASPIRIN [Concomitant]
  2. METOPROLOL SUCCINATE [Concomitant]
  3. ALDOMET [Concomitant]
  4. SANDOSTATIN LAR [Suspect]
     Indication: CARCINOID TUMOUR OF THE PANCREAS
     Dosage: 20 MG, UNK
     Dates: start: 20061101
  5. ACCUPRIL [Concomitant]

REACTIONS (7)
  - BLOOD CREATININE INCREASED [None]
  - RENAL IMPAIRMENT [None]
  - DEHYDRATION [None]
  - CARCINOID TUMOUR [None]
  - DIARRHOEA [None]
  - DISEASE PROGRESSION [None]
  - INFECTION [None]
